FAERS Safety Report 7672722-0 (Version None)
Quarter: 2011Q3

REPORT INFORMATION
  Report Type: 
  Country: None (occurrence: None)
  Receive Date: 20110809
  Receipt Date: 20110801
  Transmission Date: 20111222
  Serious: Yes (Hospitalization, Other)
  Sender: FDA-Public Use
  Company Number: US-ALEXION-A201100820

PATIENT
  Sex: Female

DRUGS (3)
  1. SOLIRIS [Suspect]
     Indication: PAROXYSMAL NOCTURNAL HAEMOGLOBINURIA
     Dosage: UNK. Q2W
     Route: 042
  2. ARANESP [Concomitant]
     Dosage: UNK
  3. COUMADIN [Concomitant]

REACTIONS (8)
  - HEPATIC HAEMORRHAGE [None]
  - HAEMATOCRIT DECREASED [None]
  - PAIN [None]
  - LEUKOCYTOSIS [None]
  - FATIGUE [None]
  - NAUSEA [None]
  - BIOPSY LIVER [None]
  - BACTERAEMIA [None]
